FAERS Safety Report 11628375 (Version 1)
Quarter: 2015Q4

REPORT INFORMATION
  Report Type: Spontaneous
  Country: US (occurrence: None)
  Receive Date: 20151013
  Receipt Date: 20151013
  Transmission Date: 20160304
  Serious: Yes (Hospitalization)
  Sender: FDA-Public Use
  Company Number: None

PATIENT
  Age: 55 Year
  Sex: Male
  Weight: 71.8 kg

DRUGS (13)
  1. PENTAMIDINE [Concomitant]
     Active Substance: PENTAMIDINE
  2. MULTIVITAMIN [Concomitant]
     Active Substance: VITAMINS
  3. PULMICORT TURBUHALER [Concomitant]
     Active Substance: BUDESONIDE
  4. URSODIOL. [Concomitant]
     Active Substance: URSODIOL
  5. ASPIRIN. [Concomitant]
     Active Substance: ASPIRIN
  6. ALBUTEROL. [Concomitant]
     Active Substance: ALBUTEROL
  7. OXYCODONE [Concomitant]
     Active Substance: OXYCODONE
  8. MAGNESIUM OXIDE. [Concomitant]
     Active Substance: MAGNESIUM OXIDE
  9. RIBAVIRIN. [Suspect]
     Active Substance: RIBAVIRIN
     Indication: HEPATITIS C
     Route: 048
     Dates: start: 20150423
  10. VITAMIN D3 [Concomitant]
     Active Substance: CHOLECALCIFEROL
  11. HARVONI [Suspect]
     Active Substance: LEDIPASVIR\SOFOSBUVIR
     Indication: HEPATITIS C
     Dosage: 90/400MG QD PO
     Route: 048
     Dates: start: 20150423
  12. AMOXICILLIN. [Concomitant]
     Active Substance: AMOXICILLIN
  13. SENNA-DOCUSAT [Concomitant]

REACTIONS (8)
  - Jaundice [None]
  - Bacteraemia [None]
  - Blood bilirubin increased [None]
  - Liver function test abnormal [None]
  - Enterococcus test positive [None]
  - Blood alkaline phosphatase increased [None]
  - Bile duct stenosis [None]
  - Klebsiella infection [None]

NARRATIVE: CASE EVENT DATE: 20150515
